FAERS Safety Report 7287337-6 (Version None)
Quarter: 2011Q1

REPORT INFORMATION
  Report Type: 
  Country: None (occurrence: None)
  Receive Date: 20110207
  Receipt Date: 20110207
  Transmission Date: 20110831
  Serious: Yes (Other)
  Sender: FDA-Public Use
  Company Number: None

PATIENT
  Sex: Male
  Weight: 75.7507 kg

DRUGS (2)
  1. CODEINE PHOSPHATE AND ACETAMINOPHEN [Suspect]
     Indication: PAIN
     Dosage: 2 TABLETS FOUR TIMES/DAY PO
     Route: 048
     Dates: start: 20101109, end: 20101210
  2. CODEINE PHOSPHATE AND ACETAMINOPHEN [Suspect]
     Indication: PAIN
     Dosage: 2 TABLETS FOUR TIMES/DAY PO
     Route: 048
     Dates: start: 20101210, end: 20110110

REACTIONS (3)
  - INADEQUATE ANALGESIA [None]
  - PRODUCT SUBSTITUTION ISSUE [None]
  - PRODUCT MEASURED POTENCY ISSUE [None]
